FAERS Safety Report 6575044-4 (Version None)
Quarter: 2010Q1

REPORT INFORMATION
  Report Type: 
  Country: None (occurrence: None)
  Receive Date: 20100209
  Receipt Date: 20100127
  Transmission Date: 20100710
  Serious: Yes (Death, Hospitalization)
  Sender: FDA-Public Use
  Company Number: CA-AMGEN-QUU388812

PATIENT
  Age: 8 Year
  Sex: Female
  Weight: 21 kg

DRUGS (3)
  1. ENBREL [Suspect]
     Indication: DRUG USE FOR UNKNOWN INDICATION
     Route: 058
  2. PREDNISONE [Suspect]
     Route: 048
  3. INDOMETHACIN [Concomitant]
     Route: 048

REACTIONS (14)
  - ARM AMPUTATION [None]
  - BRAIN OEDEMA [None]
  - CARDIAC FAILURE ACUTE [None]
  - CEREBRAL OEDEMA MANAGEMENT [None]
  - CYTOLYTIC HEPATITIS [None]
  - DISSEMINATED INTRAVASCULAR COAGULATION [None]
  - EXTREMITY NECROSIS [None]
  - LEG AMPUTATION [None]
  - PSEUDOMONAL SEPSIS [None]
  - PURPURA FULMINANS [None]
  - RENAL FAILURE ACUTE [None]
  - RESPIRATORY FAILURE [None]
  - SEPTIC SHOCK [None]
  - STREPTOCOCCAL SEPSIS [None]
